FAERS Safety Report 6023581-3 (Version None)
Quarter: 2008Q4

REPORT INFORMATION
  Report Type: 
  Country: None (occurrence: None)
  Receive Date: 20081226
  Receipt Date: 20081226
  Transmission Date: 20090506
  Serious: No
  Sender: FDA-Public Use
  Company Number: None

PATIENT
  Age: 66 Year
  Sex: Male
  Weight: 104.3273 kg

DRUGS (5)
  1. SOTALOL HCL [Suspect]
     Indication: ATRIAL FIBRILLATION
     Dosage: ONE TABLET TWICE A DAY PO
     Route: 048
     Dates: start: 20081027, end: 20081202
  2. COUMADIN [Concomitant]
  3. AVODART [Concomitant]
  4. URAXATRAL [Concomitant]
  5. AVAPRO [Concomitant]

REACTIONS (2)
  - DRUG INEFFECTIVE [None]
  - PRODUCT QUALITY ISSUE [None]
